FAERS Safety Report 18574613 (Version 2)
Quarter: 2020Q4

REPORT INFORMATION
  Report Type: Spontaneous
  Country: IE (occurrence: IE)
  Receive Date: 20201203
  Receipt Date: 20201224
  Transmission Date: 20210114
  Serious: Yes (Death, Other)
  Sender: FDA-Public Use
  Company Number: IE-BRISTOL-MYERS SQUIBB COMPANY-BMS-2020-101374

PATIENT
  Age: 71 Year
  Sex: Female

DRUGS (3)
  1. ELIQUIS [Suspect]
     Active Substance: APIXABAN
     Indication: CEREBROVASCULAR ACCIDENT PROPHYLAXIS
     Dosage: 5 MILLIGRAM, Q12H
     Route: 048
     Dates: start: 2016
  2. CLOPIDOGREL (GENERIC) [Concomitant]
     Active Substance: CLOPIDOGREL BISULFATE
     Indication: MYOCARDIAL ISCHAEMIA
     Dosage: 75 MILLIGRAM
     Route: 065
     Dates: start: 201901
  3. CLOPIDOGREL (GENERIC) [Concomitant]
     Active Substance: CLOPIDOGREL BISULFATE
     Indication: PERCUTANEOUS CORONARY INTERVENTION

REACTIONS (7)
  - Hemiparesis [Fatal]
  - Subdural haematoma [Fatal]
  - Intracranial mass [Fatal]
  - Inappropriate antidiuretic hormone secretion [Fatal]
  - Sepsis [Fatal]
  - Fall [Fatal]
  - Confusional state [Fatal]

NARRATIVE: CASE EVENT DATE: 2020
